FAERS Safety Report 16641373 (Version 1)
Quarter: 2019Q3

REPORT INFORMATION
  Report Type: Report from Study
  Country: BR (occurrence: BR)
  Receive Date: 20190729
  Receipt Date: 20190729
  Transmission Date: 20191004
  Serious: Yes (Other)
  Sender: FDA-Public Use
  Company Number: BR-ROCHE-2364107

PATIENT
  Sex: Male
  Weight: 63 kg

DRUGS (3)
  1. SYMBICORT [Concomitant]
     Active Substance: BUDESONIDE\FORMOTEROL FUMARATE DIHYDRATE
     Indication: BRONCHITIS CHRONIC
     Dosage: 1 DF, QD (PUFF) 3 YEARS AGO
     Route: 055
  2. XOLAIR [Suspect]
     Active Substance: OMALIZUMAB
     Route: 058
     Dates: start: 20190624
  3. XOLAIR [Suspect]
     Active Substance: OMALIZUMAB
     Indication: BRONCHITIS CHRONIC
     Route: 058

REACTIONS (3)
  - Asthmatic crisis [Recovering/Resolving]
  - Product use in unapproved indication [Unknown]
  - Nasopharyngitis [Recovering/Resolving]
